FAERS Safety Report 5005396-8 (Version None)
Quarter: 2006Q2

REPORT INFORMATION
  Report Type: 
  Country: None (occurrence: None)
  Receive Date: 20060518
  Receipt Date: 20060103
  Transmission Date: 20061013
  Serious: Yes (Other)
  Sender: FDA-Public Use
  Company Number: US-MERCK-0601USA00262

PATIENT
  Age: 58 Year
  Sex: Male
  Weight: 82 kg

DRUGS (3)
  1. VIOXX [Suspect]
     Indication: ARTHRITIS
     Route: 048
     Dates: start: 20000222, end: 20040601
  2. VIOXX [Suspect]
     Indication: BACK PAIN
     Route: 048
     Dates: start: 20000222, end: 20040601
  3. TRAMADOL HYDROCHLORIDE [Concomitant]
     Route: 065

REACTIONS (18)
  - ABDOMINAL PAIN [None]
  - ARTERIOSCLEROSIS [None]
  - BENIGN PROSTATIC HYPERPLASIA [None]
  - BONE DEVELOPMENT ABNORMAL [None]
  - BRONCHITIS ACUTE [None]
  - CHEST PAIN [None]
  - FATIGUE [None]
  - GALLBLADDER DISORDER [None]
  - HEPATITIS A [None]
  - HEPATOCELLULAR DAMAGE [None]
  - HERPES SIMPLEX [None]
  - HYPERLIPIDAEMIA [None]
  - HYPERTENSION [None]
  - INTERVERTEBRAL DISC DEGENERATION [None]
  - JOINT INJURY [None]
  - NOCTURIA [None]
  - OCULAR VASCULAR DISORDER [None]
  - RENAL CYST [None]
